FAERS Safety Report 9645520 (Version 1)
Quarter: 2013Q4

REPORT INFORMATION
  Report Type: Spontaneous
  Country: TR (occurrence: TR)
  Receive Date: 20131025
  Receipt Date: 20131025
  Transmission Date: 20140711
  Serious: Yes (Other)
  Sender: FDA-Public Use
  Company Number: TR-009507513-1310TUR010401

PATIENT
  Age: 31 Year
  Sex: Female
  Weight: 70 kg

DRUGS (5)
  1. JANUMET 50/500 MG [Suspect]
     Indication: TYPE 2 DIABETES MELLITUS
     Dosage: 100 MG/1000MG, BID
     Route: 048
     Dates: start: 20131003
  2. JANUMET 50/500 MG [Suspect]
     Dosage: 1 TABLET AT 10:00 AM, IN THE EVENING AT 16:00 AND AFTER DINNER AT 21:00 PM
     Dates: start: 20131016
  3. CIPRO [Concomitant]
     Indication: URINARY TRACT INFECTION
     Dosage: UNK, BID
     Route: 048
     Dates: start: 20131011, end: 20131018
  4. EUTHYROX [Concomitant]
     Indication: THYROID THERAPY
     Dosage: 50 MG,2 TABLETS IN THE MORNINGS
     Route: 048
     Dates: start: 2012
  5. EUTHYROX [Concomitant]
     Dosage: 50 MG, 2 TABLETS IN THE EVENING
     Route: 048
     Dates: start: 2012

REACTIONS (10)
  - Cold sweat [Recovered/Resolved]
  - Hypoglycaemia [Recovered/Resolved]
  - Dizziness [Recovered/Resolved]
  - Diarrhoea [Recovered/Resolved]
  - Asthenia [Recovered/Resolved]
  - Vomiting [Recovered/Resolved]
  - Faeces discoloured [Recovered/Resolved]
  - Cardiac discomfort [Not Recovered/Not Resolved]
  - Flatulence [Not Recovered/Not Resolved]
  - Abdominal pain [Not Recovered/Not Resolved]
